FAERS Safety Report 4995387-5 (Version None)
Quarter: 2006Q2

REPORT INFORMATION
  Report Type: 
  Country: None (occurrence: None)
  Receive Date: 20060503
  Receipt Date: 20060417
  Transmission Date: 20061013
  Serious: Yes (Hospitalization, Other)
  Sender: FDA-Public Use
  Company Number: US200604002784

PATIENT
  Sex: Female

DRUGS (9)
  1. FORTEO [Suspect]
     Indication: OSTEOPOROSIS
     Dates: start: 20040301, end: 20051201
  2. EVISTA [Suspect]
     Indication: OSTEOPOROSIS
     Dates: start: 20040101
  3. FORTEO [Concomitant]
  4. VASOTEC [Concomitant]
  5. METOPROLOL TARTRATE [Concomitant]
  6. PROTONIX [Concomitant]
  7. NORVASC /DEN/ (AMLODIPINE BESILATE) [Concomitant]
  8. LEXAPRO /USA/ (ESCITALOPRAM) [Concomitant]
  9. FERROUS SULFATE TAB [Concomitant]

REACTIONS (5)
  - CEREBRAL THROMBOSIS [None]
  - FALL [None]
  - HEAD INJURY [None]
  - INTRACRANIAL PRESSURE INCREASED [None]
  - PHARMACEUTICAL PRODUCT COMPLAINT [None]
